FAERS Safety Report 10246692 (Version 1)
Quarter: 2014Q2

REPORT INFORMATION
  Report Type: Spontaneous
  Country: US (occurrence: None)
  Receive Date: 20140617
  Receipt Date: 20140617
  Transmission Date: 20141212
  Serious: Yes (Disabling)
  Sender: FDA-Public Use
  Company Number: None

PATIENT
  Age: 37 Year
  Sex: Male
  Weight: 77.11 kg

DRUGS (1)
  1. FINASTERIDE [Suspect]
     Indication: ANDROGENETIC ALOPECIA
     Dosage: 1.25MG  ONCE DAILY  TAKEN BY MOUTH
     Route: 048
     Dates: start: 20140331, end: 20140423

REACTIONS (8)
  - Genital hypoaesthesia [None]
  - Insomnia [None]
  - Dry mouth [None]
  - Dry eye [None]
  - Nerve injury [None]
  - Libido decreased [None]
  - Job dissatisfaction [None]
  - Fear [None]
